FAERS Safety Report 7887785-7 (Version None)
Quarter: 2011Q4

REPORT INFORMATION
  Report Type: 
  Country: None (occurrence: None)
  Receive Date: 20111103
  Receipt Date: 20111024
  Transmission Date: 20120403
  Serious: Yes (Other)
  Sender: FDA-Public Use
  Company Number: FR-JNJFOC-20111011188

PATIENT
  Age: 24 Year
  Sex: Female

DRUGS (3)
  1. HYDROCORTISONE [Concomitant]
     Route: 065
  2. REMICADE [Suspect]
     Route: 042
     Dates: start: 20111024, end: 20111024
  3. REMICADE [Suspect]
     Indication: CROHN'S DISEASE
     Route: 042

REACTIONS (6)
  - OXYGEN SATURATION DECREASED [None]
  - TACHYCARDIA [None]
  - ERYTHEMA [None]
  - VOMITING [None]
  - INFUSION RELATED REACTION [None]
  - DYSPNOEA [None]
